FAERS Safety Report 9473441 (Version 1)
Quarter: 2013Q3

REPORT INFORMATION
  Report Type: Spontaneous
  Country: US (occurrence: US)
  Receive Date: 20130823
  Receipt Date: 20130823
  Transmission Date: 20140515
  Serious: No
  Sender: FDA-Public Use
  Company Number: US-BRISTOL-MYERS SQUIBB COMPANY-18984211

PATIENT
  Age: 59 Year
  Sex: Female
  Weight: 85.26 kg

DRUGS (13)
  1. SPRYCEL [Suspect]
     Indication: CHRONIC MYELOID LEUKAEMIA
     Route: 048
     Dates: start: 20130427
  2. ALEVE [Concomitant]
  3. ASPIRIN [Concomitant]
  4. CALCIUM [Concomitant]
  5. CYMBALTA [Concomitant]
  6. FLONASE [Concomitant]
  7. IBUPROFEN [Concomitant]
  8. KRILL OIL [Concomitant]
  9. MELOXICAM [Concomitant]
  10. MULTIVITAMIN [Concomitant]
  11. SIMVASTATIN [Concomitant]
  12. TYLENOL [Concomitant]
  13. ZYRTEC [Concomitant]

REACTIONS (3)
  - Nausea [Unknown]
  - Contusion [Unknown]
  - Dry skin [Unknown]
